FAERS Safety Report 18824293 (Version 1)
Quarter: 2021Q1

REPORT INFORMATION
  Report Type: Spontaneous
  Country: IE (occurrence: IE)
  Receive Date: 20210202
  Receipt Date: 20210202
  Transmission Date: 20210419
  Serious: Yes (Other)
  Sender: FDA-Public Use
  Company Number: IE-VERTEX PHARMACEUTICALS-2021-001430

PATIENT
  Age: 27 Year
  Sex: Female

DRUGS (20)
  1. LEVEMIR [Concomitant]
     Active Substance: INSULIN DETEMIR
     Dosage: 22 UNITS, AM + 18 UNITS, PM
  2. LEVOTHYROXINE SODIUM. [Concomitant]
     Active Substance: LEVOTHYROXINE SODIUM
     Dosage: 25 MICROGRAM, 24H
     Route: 048
  3. CALTRATE [CALCIUM CARBONATE;COLECALCIFEROL] [Concomitant]
     Dosage: 600 MG/400 IU, FILM?COATED TABS, BID
     Route: 048
  4. MOVICOL PLAIN [Concomitant]
     Active Substance: POLYETHYLENE GLYCOL 3350\POTASSIUM CHLORIDE\SODIUM BICARBONATE\SODIUM CHLORIDE
     Dosage: 13.8G SACHET, POWDER FOR ORAL SOLUTION
     Route: 048
  5. DESUNIN [Concomitant]
     Active Substance: CHOLECALCIFEROL
     Dosage: 800IU, 6 TABS OD, 24H
     Route: 048
  6. PULMOZYME [Concomitant]
     Active Substance: DORNASE ALFA
     Dosage: 2.5MG, 24H, NEBULISER SOL
  7. SALINE [SODIUM CHLORIDE] [Concomitant]
     Active Substance: SODIUM CHLORIDE
     Dosage: 3%, BID
  8. VENTOLIN [Concomitant]
     Active Substance: ALBUTEROL SULFATE
     Dosage: 100 MICROGRAM, PRN, PRESSURISED INHALATION, SUSPENSION
  9. CREON [Concomitant]
     Active Substance: PANCRELIPASE AMYLASE\PANCRELIPASE LIPASE\PANCRELIPASE PROTEASE
     Dosage: 300MG, 25000 UNITS WITH MEALS
  10. SYMBICORT [Concomitant]
     Active Substance: BUDESONIDE\FORMOTEROL FUMARATE DIHYDRATE
     Dosage: 400MCG /12MCG/ INHALLATION, INHALATION POWDER, BID
  11. KALYDECO [Suspect]
     Active Substance: IVACAFTOR
     Indication: CYSTIC FIBROSIS
     Dosage: 150 MG, EVERY NIGHT
     Route: 048
     Dates: start: 20201204
  12. OMEPRAZOLE. [Concomitant]
     Active Substance: OMEPRAZOLE
     Dosage: 20MG, 24H
     Route: 048
  13. CERAZETTE [DESOGESTREL] [Concomitant]
     Active Substance: DESOGESTREL
     Dosage: FILM?COATED TAB, 24H
     Route: 048
  14. KAFTRIO [Suspect]
     Active Substance: ELEXACAFTOR\IVACAFTOR\TEZACAFTOR
     Indication: CYSTIC FIBROSIS
     Dosage: 2 TABS IN MORNING
     Route: 048
     Dates: start: 20201204
  15. COLOBREATHE [Concomitant]
     Active Substance: COLISTIMETHATE SODIUM
     Dosage: 125 MG, BID
  16. AZITHROMYCIN ANHYDROUS. [Concomitant]
     Active Substance: AZITHROMYCIN ANHYDROUS
     Dosage: 500MG, MON/WED/FRI
     Route: 048
  17. TOBI PODHALER [Concomitant]
     Active Substance: TOBRAMYCIN
     Dosage: 112 MG, BID
  18. NOVORAPID [Concomitant]
     Active Substance: INSULIN ASPART
     Dosage: 2?4 UNITS WITH MEALS
     Route: 058
  19. RESOLOR [Concomitant]
     Active Substance: PRUCALOPRIDE SUCCINATE
     Dosage: 2.6MG, 2 TABS (FILM?COATED TAB), EVERY NIGHT
  20. SALINE [SODIUM CHLORIDE] [Concomitant]
     Active Substance: SODIUM CHLORIDE
     Dosage: OFTEN INCREASES TO 7% FOR INITIAL FEW DAYS OF INPATIENT STAY WITH IECF

REACTIONS (6)
  - Gastrooesophageal reflux disease [Recovered/Resolved]
  - Condition aggravated [Not Recovered/Not Resolved]
  - Weight increased [Recovering/Resolving]
  - Constipation [Recovering/Resolving]
  - Fluid retention [Recovering/Resolving]
  - Abdominal distension [Not Recovered/Not Resolved]

NARRATIVE: CASE EVENT DATE: 20201225
